FAERS Safety Report 8804536 (Version 4)
Quarter: 2014Q3

REPORT INFORMATION
  Report Type: Spontaneous
  Country: US (occurrence: US)
  Receive Date: 20120924
  Receipt Date: 20140828
  Transmission Date: 20150326
  Serious: Yes (Hospitalization, Other)
  Sender: FDA-Public Use
  Company Number: US-009507513-2009-189324-NL

PATIENT
  Sex: Female
  Weight: 87.75 kg

DRUGS (4)
  1. NUVARING [Suspect]
     Active Substance: ETHINYL ESTRADIOL\ETONOGESTREL
     Indication: MENSTRUAL CYCLE MANAGEMENT
  2. VITAMINS (UNSPECIFIED) [Concomitant]
     Active Substance: VITAMINS
     Indication: PRODUCT USED FOR UNKNOWN INDICATION
  3. NUVARING [Suspect]
     Active Substance: ETHINYL ESTRADIOL\ETONOGESTREL
     Indication: CONTRACEPTION
     Dosage: DOSE TEXT: 3 WEEKS PER MONTH, CONTINUING: NO
     Route: 067
     Dates: start: 20050809, end: 200704
  4. HYDROCHLOROTHIAZIDE. [Concomitant]
     Active Substance: HYDROCHLOROTHIAZIDE
     Indication: HYPERTENSION
     Dosage: 25 MG, QD
     Route: 048
     Dates: start: 2007

REACTIONS (25)
  - Off label use [Unknown]
  - Hypertriglyceridaemia [Unknown]
  - Dyspareunia [Unknown]
  - Smear cervix abnormal [Unknown]
  - Muscle contractions involuntary [Unknown]
  - Headache [Unknown]
  - Uterine leiomyoma [Unknown]
  - Ligament sprain [Unknown]
  - Hysteroscopy [Unknown]
  - Polycystic ovaries [Unknown]
  - Coital bleeding [Unknown]
  - Seborrhoea [Unknown]
  - Hepatic steatosis [Unknown]
  - Menometrorrhagia [Unknown]
  - Uterine dilation and curettage [Unknown]
  - Hypertension [Recovering/Resolving]
  - Uterine dilation and curettage [Unknown]
  - Dyspepsia [Unknown]
  - Hepatomegaly [Unknown]
  - Endometrial ablation [Unknown]
  - Metrorrhagia [Unknown]
  - Pain in extremity [Unknown]
  - Deep vein thrombosis [Recovered/Resolved]
  - Ear disorder [Unknown]
  - Diverticulitis [Unknown]

NARRATIVE: CASE EVENT DATE: 20070210
